FAERS Safety Report 7637635-9 (Version None)
Quarter: 2011Q3

REPORT INFORMATION
  Report Type: 
  Country: None (occurrence: None)
  Receive Date: 20110726
  Receipt Date: 20110720
  Transmission Date: 20111222
  Serious: Yes (Hospitalization)
  Sender: FDA-Public Use
  Company Number: US-MERCK-1107USA02554

PATIENT
  Age: 54 Year
  Sex: Female

DRUGS (3)
  1. FOSAMAX [Suspect]
     Indication: OSTEOPOROSIS
     Route: 048
     Dates: start: 19980101, end: 20070510
  2. FOSAMAX [Suspect]
     Indication: OSTEOPENIA
     Route: 048
     Dates: start: 19980101, end: 20070510
  3. FOSAMAX PLUS D [Suspect]
     Indication: OSTEOPENIA
     Route: 048
     Dates: start: 20070511, end: 20100307

REACTIONS (13)
  - SLEEP DISORDER [None]
  - GAIT DISTURBANCE [None]
  - HORMONE LEVEL ABNORMAL [None]
  - HYPERSENSITIVITY [None]
  - HAND FRACTURE [None]
  - FRACTURE NONUNION [None]
  - MUSCLE SPASMS [None]
  - WRIST FRACTURE [None]
  - FEMUR FRACTURE [None]
  - FALL [None]
  - BLOOD CHOLESTEROL INCREASED [None]
  - DYSMENORRHOEA [None]
  - DRUG HYPERSENSITIVITY [None]
